FAERS Safety Report 18784929 (Version 1)
Quarter: 2021Q1

REPORT INFORMATION
  Report Type: Spontaneous
  Country: US (occurrence: US)
  Receive Date: 20210125
  Receipt Date: 20210125
  Transmission Date: 20210419
  Serious: Yes (Disabling, Other)
  Sender: FDA-Public Use
  Company Number: US-PURDUE-USA-2020-0161782

PATIENT
  Sex: Male

DRUGS (2)
  1. OXYCONTIN [Suspect]
     Active Substance: OXYCODONE HYDROCHLORIDE
     Indication: PRODUCT USED FOR UNKNOWN INDICATION
     Dosage: 20 MG, BID
     Route: 048
     Dates: start: 200204
  2. ROXANOL [Suspect]
     Active Substance: MORPHINE SULFATE
     Indication: PRODUCT USED FOR UNKNOWN INDICATION
     Dosage: 5 MG, QOD
     Route: 065
     Dates: start: 200204

REACTIONS (13)
  - Insomnia [Unknown]
  - Memory impairment [Unknown]
  - Drug dependence [Unknown]
  - Anger [Unknown]
  - Tremor [Unknown]
  - Cardiac failure congestive [Unknown]
  - Disturbance in attention [Unknown]
  - Hypertension [Unknown]
  - Depression [Unknown]
  - Bruxism [Unknown]
  - Neuropathy peripheral [Not Recovered/Not Resolved]
  - Myocardial infarction [Unknown]
  - Anxiety [None]
